FAERS Safety Report 8202771-5 (Version None)
Quarter: 2012Q1

REPORT INFORMATION
  Report Type: 
  Country: None (occurrence: None)
  Receive Date: 20120312
  Receipt Date: 20120312
  Transmission Date: 20120608
  Serious: No
  Sender: FDA-Public Use
  Company Number: None

PATIENT
  Age: 48 Year
  Sex: Male
  Weight: 133 kg

DRUGS (11)
  1. METFORMIN HCL [Concomitant]
  2. HUMALOG [Concomitant]
  3. ZOLOFT [Concomitant]
  4. ADDERALL 5 [Concomitant]
  5. AMBIEN [Concomitant]
  6. REBETOL [Concomitant]
  7. LANTUS [Concomitant]
  8. ACTOS [Concomitant]
  9. PEG-INTRON [Suspect]
     Indication: HEPATITIS C
     Dosage: 150 MCG
     Route: 058
     Dates: start: 20120207, end: 20120307
  10. PEGINTRON ALPHA2B [Concomitant]
     Dosage: 150 MCG
     Route: 058
     Dates: start: 20120207, end: 20120307
  11. RESTORIL [Concomitant]

REACTIONS (1)
  - FEAR OF DEATH [None]
